FAERS Safety Report 6201834-3 (Version None)
Quarter: 2009Q2

REPORT INFORMATION
  Report Type: 
  Country: None (occurrence: None)
  Receive Date: 20090520
  Receipt Date: 20090513
  Transmission Date: 20091009
  Serious: Yes (Hospitalization)
  Sender: FDA-Public Use
  Company Number: 2009005521

PATIENT
  Sex: Male

DRUGS (6)
  1. TREANDA [Suspect]
     Indication: ACUTE LEUKAEMIA
     Dosage: SEE IMAGE
     Route: 042
     Dates: start: 20090226, end: 20090226
  2. TREANDA [Suspect]
     Indication: MYELODYSPLASTIC SYNDROME
     Dosage: SEE IMAGE
     Route: 042
     Dates: start: 20090226, end: 20090226
  3. TREANDA [Suspect]
     Indication: ACUTE LEUKAEMIA
     Dosage: SEE IMAGE
     Route: 042
     Dates: start: 20090227, end: 20090301
  4. TREANDA [Suspect]
     Indication: MYELODYSPLASTIC SYNDROME
     Dosage: SEE IMAGE
     Route: 042
     Dates: start: 20090227, end: 20090301
  5. TREANDA [Suspect]
     Indication: ACUTE LEUKAEMIA
     Dosage: SEE IMAGE
     Route: 042
     Dates: start: 20090302, end: 20090302
  6. TREANDA [Suspect]
     Indication: MYELODYSPLASTIC SYNDROME
     Dosage: SEE IMAGE
     Route: 042
     Dates: start: 20090302, end: 20090302

REACTIONS (12)
  - BLOOD SODIUM DECREASED [None]
  - CONVULSION [None]
  - FUNGAL INFECTION [None]
  - HEADACHE [None]
  - HYPERTENSIVE CRISIS [None]
  - HYPERURICAEMIA [None]
  - JC VIRUS INFECTION [None]
  - LETHARGY [None]
  - MENTAL STATUS CHANGES [None]
  - RENAL IMPAIRMENT [None]
  - REVERSIBLE POSTERIOR LEUKOENCEPHALOPATHY SYNDROME [None]
  - TUMOUR LYSIS SYNDROME [None]
